FAERS Safety Report 24972382 (Version 1)
Quarter: 2025Q1

REPORT INFORMATION
  Report Type: Spontaneous
  Country: KR (occurrence: KR)
  Receive Date: 20250215
  Receipt Date: 20250215
  Transmission Date: 20250409
  Serious: No
  Sender: ALEXION PHARMACEUTICALS
  Company Number: KR-AstraZeneca-2024-120171

PATIENT
  Age: 61 Year

DRUGS (2)
  1. NEXIUM [Suspect]
     Active Substance: ESOMEPRAZOLE MAGNESIUM
     Dosage: 1 DOSAGE FORM, QD
  2. SODIUM ALGINATE [Suspect]
     Active Substance: SODIUM ALGINATE
     Dosage: 1 DOSAGE FORM, TID

REACTIONS (2)
  - Tinnitus [Recovered/Resolved]
  - Ear pain [Recovered/Resolved]
